FAERS Safety Report 13976872 (Version 1)
Quarter: 2017Q3

REPORT INFORMATION
  Report Type: Spontaneous
  Country: US (occurrence: US)
  Receive Date: 20170915
  Receipt Date: 20170915
  Transmission Date: 20171128
  Serious: Yes (Hospitalization)
  Sender: FDA-Public Use
  Company Number: PHHY2017US134512

PATIENT
  Sex: Female

DRUGS (6)
  1. TIZANIDINE. [Suspect]
     Active Substance: TIZANIDINE
     Indication: FOETAL EXPOSURE DURING PREGNANCY
     Dosage: UNK
     Route: 064
  2. HEPARIN [Suspect]
     Active Substance: HEPARIN SODIUM
     Indication: FOETAL EXPOSURE DURING PREGNANCY
     Dosage: UNK
     Route: 064
  3. NITROFURANTOIN. [Suspect]
     Active Substance: NITROFURANTOIN
     Indication: FOETAL EXPOSURE DURING PREGNANCY
     Dosage: UNK
     Route: 064
  4. GABAPENTIN. [Suspect]
     Active Substance: GABAPENTIN
     Indication: FOETAL EXPOSURE DURING PREGNANCY
     Dosage: UNK
     Route: 064
  5. TRAZODONE [Suspect]
     Active Substance: TRAZODONE HYDROCHLORIDE
     Indication: FOETAL EXPOSURE DURING PREGNANCY
     Dosage: UNK
     Route: 064
  6. BACLOFEN. [Suspect]
     Active Substance: BACLOFEN
     Indication: FOETAL EXPOSURE DURING PREGNANCY
     Dosage: MATERNAL DOSE: 40 MG, FOUR TIMES DAILY
     Route: 064

REACTIONS (11)
  - Selective eating disorder [Recovered/Resolved]
  - Diarrhoea [Recovered/Resolved]
  - Poor sucking reflex [Recovered/Resolved]
  - Tremor neonatal [Recovered/Resolved]
  - Drug withdrawal syndrome neonatal [Recovered/Resolved]
  - Faeces discoloured [Recovered/Resolved]
  - Reflexes abnormal [Recovered/Resolved]
  - Sneezing [Recovered/Resolved]
  - Foetal exposure during pregnancy [Unknown]
  - Retching [Recovered/Resolved]
  - Hypertonia [Recovered/Resolved]
